FAERS Safety Report 7716847-X (Version None)
Quarter: 2011Q3

REPORT INFORMATION
  Report Type: 
  Country: None (occurrence: None)
  Receive Date: 20110829
  Receipt Date: 20110818
  Transmission Date: 20111222
  Serious: Yes (Hospitalization, Other)
  Sender: FDA-Public Use
  Company Number: US-ASTRAZENECA-2011SE49541

PATIENT
  Age: 69 Year
  Sex: Female
  Weight: 59.9 kg

DRUGS (23)
  1. CITALOPRAM [Concomitant]
     Indication: DEPRESSION
     Route: 048
     Dates: start: 20110501
  2. ALPRAZOLAM [Concomitant]
     Route: 048
     Dates: start: 20090101
  3. ARICEPT [Concomitant]
  4. SEROQUEL XR [Suspect]
     Route: 048
     Dates: start: 20100201
  5. SEROQUEL XR [Suspect]
     Route: 048
     Dates: start: 20110301
  6. SEROQUEL XR [Suspect]
     Route: 048
     Dates: start: 20110301
  7. SEROQUEL XR [Suspect]
     Route: 048
  8. SEROQUEL XR [Suspect]
     Route: 048
  9. LEXAPRO [Concomitant]
     Indication: DEPRESSION
     Route: 048
     Dates: start: 20070101, end: 20110501
  10. SEROQUEL XR [Suspect]
     Indication: DEMENTIA ALZHEIMER'S TYPE
     Route: 048
     Dates: start: 20091001
  11. SEROQUEL XR [Suspect]
     Indication: DEMENTIA
     Route: 048
     Dates: start: 20091001
  12. SEROQUEL XR [Suspect]
     Indication: DEPRESSION
     Route: 048
     Dates: start: 20091001
  13. SEROQUEL XR [Suspect]
     Route: 048
     Dates: start: 20100101
  14. SEROQUEL XR [Suspect]
     Route: 048
  15. METOPROLOL [Concomitant]
     Indication: HYPERTENSION
     Route: 048
  16. NAMENDA [Concomitant]
  17. SEROQUEL XR [Suspect]
     Route: 048
     Dates: start: 20100201
  18. SEROQUEL XR [Suspect]
     Route: 048
     Dates: start: 20100201
  19. ALPRAZOLAM [Concomitant]
     Indication: DEPRESSION
     Route: 048
     Dates: start: 20050101, end: 20090101
  20. SEROQUEL XR [Suspect]
     Route: 048
     Dates: start: 20100101
  21. SEROQUEL XR [Suspect]
     Route: 048
     Dates: start: 20100101
  22. SEROQUEL XR [Suspect]
     Route: 048
     Dates: start: 20110301
  23. HYDROCHLOROTHIAZIDE [Concomitant]
     Indication: HYPERTENSION
     Route: 048
     Dates: start: 20110301

REACTIONS (11)
  - APHASIA [None]
  - DYSPHAGIA [None]
  - MOTOR DYSFUNCTION [None]
  - CONFUSIONAL STATE [None]
  - CRYING [None]
  - OFF LABEL USE [None]
  - FALL [None]
  - TRANSIENT ISCHAEMIC ATTACK [None]
  - SPEECH DISORDER [None]
  - AGITATION [None]
  - DEPRESSION [None]
